FAERS Safety Report 4884721-2 (Version None)
Quarter: 2006Q1

REPORT INFORMATION
  Report Type: 
  Country: None (occurrence: None)
  Receive Date: 20060119
  Receipt Date: 20060111
  Transmission Date: 20060701
  Serious: Yes (Hospitalization)
  Sender: FDA-Public Use
  Company Number: 2006SE00210

PATIENT
  Age: 657 Month
  Sex: Male
  Weight: 78 kg

DRUGS (5)
  1. BLOPRESS PLUS [Suspect]
     Indication: HYPERTENSION
     Dosage: CANDESARTAN CILEXETIL 16 MG; HYDROCHLOROTHIAZIDE 12,5 MG
     Route: 048
     Dates: start: 20041101
  2. ASPIRIN [Concomitant]
     Route: 048
  3. AMLODIPINE [Concomitant]
     Indication: HYPERTENSION
     Route: 048
     Dates: start: 20030101
  4. ALLOPURINOL [Concomitant]
     Route: 048
  5. BAYMYCARD [Concomitant]
     Indication: HYPERTENSION
     Route: 048
     Dates: start: 20030101

REACTIONS (1)
  - DEEP VEIN THROMBOSIS [None]
